FAERS Safety Report 4627599-4 (Version None)
Quarter: 2005Q2

REPORT INFORMATION
  Report Type: 
  Country: None (occurrence: None)
  Receive Date: 20050405
  Receipt Date: 20050322
  Transmission Date: 20051028
  Serious: Yes (Disabling)
  Sender: FDA-Public Use
  Company Number: 2004073851

PATIENT
  Age: 66 Year
  Sex: Female

DRUGS (11)
  1. GEODON [Suspect]
     Indication: BIPOLAR DISORDER
     Dosage: 160 MG (80 MG), ORAL
     Route: 048
     Dates: start: 20040716, end: 20040818
  2. BUPROPION HYDROCHLORIDE [Concomitant]
  3. LITHIUM CARBONATE [Concomitant]
  4. ISOPHANE INSULIN [Concomitant]
  5. METFORMIN HCL [Concomitant]
  6. GLYBURIDE [Concomitant]
  7. PRAVASTATIN SODIUM [Concomitant]
  8. LITHIUM CARBONATE [Concomitant]
  9. ALPRAZOLAM [Concomitant]
  10. INSULIN GLARGINE (INSULIN GLARGINE) [Concomitant]
  11. VENLAFAXINE HCL [Concomitant]

REACTIONS (6)
  - AGITATION [None]
  - COORDINATION ABNORMAL [None]
  - DIFFICULTY IN WALKING [None]
  - EXTRAPYRAMIDAL DISORDER [None]
  - GAIT DISTURBANCE [None]
  - TREMOR [None]
